FAERS Safety Report 11501513 (Version 1)
Quarter: 2015Q3

REPORT INFORMATION
  Report Type: Report from Study
  Country: US (occurrence: US)
  Receive Date: 20150914
  Receipt Date: 20150914
  Transmission Date: 20151125
  Serious: Yes (Other)
  Sender: FDA-Public Use
  Company Number: US-AMGEN-USASP2015093638

PATIENT
  Age: 38 Year
  Sex: Female

DRUGS (1)
  1. ENBREL [Suspect]
     Active Substance: ETANERCEPT
     Indication: ANKYLOSING SPONDYLITIS
     Dosage: 25 MG, 2 TIMES/WK
     Route: 065
     Dates: start: 20140405

REACTIONS (5)
  - Ankylosing spondylitis [Unknown]
  - Iritis [Recovered/Resolved]
  - Injection site pruritus [Unknown]
  - Fatigue [Not Recovered/Not Resolved]
  - Uveitis [Recovered/Resolved]
